FAERS Safety Report 23803510 (Version 2)
Quarter: 2024Q2

REPORT INFORMATION
  Report Type: Report from Study
  Country: CA (occurrence: None)
  Receive Date: 20240501
  Receipt Date: 20240502
  Transmission Date: 20240716
  Serious: Yes (Hospitalization, Other)
  Sender: FDA-Public Use
  Company Number: 2024A063655

PATIENT
  Sex: Female

DRUGS (17)
  1. FASENRA [Suspect]
     Active Substance: BENRALIZUMAB
     Indication: Asthma
     Route: 058
     Dates: start: 20190604
  2. PREDNISONE [Concomitant]
     Active Substance: PREDNISONE
  3. PREDNISONE [Concomitant]
     Active Substance: PREDNISONE
  4. SINGULAIR [Concomitant]
     Active Substance: MONTELUKAST SODIUM
  5. BENADRYL [Concomitant]
     Active Substance: DIPHENHYDRAMINE HYDROCHLORIDE
  6. LASIX [Concomitant]
     Active Substance: FUROSEMIDE
  7. LEVOTHYROXINE [Concomitant]
     Active Substance: LEVOTHYROXINE\LEVOTHYROXINE SODIUM
  8. CALCIUM [Concomitant]
     Active Substance: CALCIUM
  9. RAMIPRIL [Concomitant]
     Active Substance: RAMIPRIL
  10. JANUBIA [Concomitant]
  11. GLICLAZIDE [Concomitant]
     Active Substance: GLICLAZIDE
     Dosage: 4 IN AM
  12. GABAPENTIN [Concomitant]
     Active Substance: GABAPENTIN
  13. PREVACID [Concomitant]
     Active Substance: LANSOPRAZOLE
  14. VENTOLIN [Concomitant]
     Active Substance: ALBUTEROL SULFATE
     Dosage: 100.0UG AS REQUIRED
  15. ATROVENT [Concomitant]
     Active Substance: IPRATROPIUM BROMIDE
  16. SYMBICORT [Concomitant]
     Active Substance: BUDESONIDE\FORMOTEROL FUMARATE DIHYDRATE
  17. XOLAIR [Concomitant]
     Active Substance: OMALIZUMAB

REACTIONS (10)
  - Somnolence [Unknown]
  - Influenza [Unknown]
  - Pneumonia [Unknown]
  - Pneumothorax [Unknown]
  - Pulmonary thrombosis [Unknown]
  - Hypersomnia [Unknown]
  - Asthma [Unknown]
  - Fatigue [Unknown]
  - Urinary tract infection [Unknown]
  - Drug ineffective [Unknown]
